FAERS Safety Report 10730710 (Version 2)
Quarter: 2015Q1

REPORT INFORMATION
  Report Type: Spontaneous
  Country: CA (occurrence: CA)
  Receive Date: 20150122
  Receipt Date: 20150310
  Transmission Date: 20150721
  Serious: Yes (Life-Threatening)
  Sender: FDA-Public Use
  Company Number: CA-ABBVIE-15P-028-1335192-00

PATIENT
  Age: 29 Year
  Sex: Female
  Weight: 99.88 kg

DRUGS (10)
  1. CLONAZEPAM. [Concomitant]
     Active Substance: CLONAZEPAM
     Indication: PRODUCT USED FOR UNKNOWN INDICATION
     Dosage: ONCE DAILY AS NEEDED
     Route: 048
  2. LAMOTRIGINE. [Concomitant]
     Active Substance: LAMOTRIGINE
     Indication: PRODUCT USED FOR UNKNOWN INDICATION
     Dosage: 4 IN THE MORNING AND 7 AT SUPPERTIME
  3. SEROQUEL [Concomitant]
     Active Substance: QUETIAPINE FUMARATE
     Indication: PRODUCT USED FOR UNKNOWN INDICATION
     Dosage: AS NEEDED
  4. ZOPICLONE [Concomitant]
     Active Substance: ZOPICLONE
     Indication: INSOMNIA
     Dosage: 1-2 AS NEEDED AT BEDTIME
     Route: 048
  5. LUPRON DEPOT [Interacting]
     Active Substance: LEUPROLIDE ACETATE
     Indication: ENDOMETRIOSIS
  6. LORAZEPAM. [Concomitant]
     Active Substance: LORAZEPAM
     Indication: PRODUCT USED FOR UNKNOWN INDICATION
     Dosage: AS NEEDED
     Route: 048
  7. OXYCODONE [Concomitant]
     Active Substance: OXYCODONE
     Indication: PRODUCT USED FOR UNKNOWN INDICATION
     Route: 048
  8. OMEPRAZOLE. [Concomitant]
     Active Substance: OMEPRAZOLE
     Indication: PRODUCT USED FOR UNKNOWN INDICATION
     Route: 048
  9. LUPRON DEPOT [Suspect]
     Active Substance: LEUPROLIDE ACETATE
     Indication: PELVIC PAIN
     Route: 030
     Dates: start: 201407
  10. CITALOPRAM [Concomitant]
     Active Substance: CITALOPRAM HYDROBROMIDE
     Indication: PRODUCT USED FOR UNKNOWN INDICATION
     Route: 048

REACTIONS (15)
  - Nipple disorder [Recovering/Resolving]
  - Obsessive thoughts [Recovering/Resolving]
  - Suicidal ideation [Recovering/Resolving]
  - Mood altered [Unknown]
  - Drug interaction [Recovering/Resolving]
  - Mood altered [Recovering/Resolving]
  - Headache [Recovering/Resolving]
  - Crying [Recovering/Resolving]
  - Insomnia [Recovering/Resolving]
  - Suicide attempt [Recovering/Resolving]
  - Affect lability [Recovering/Resolving]
  - Nipple disorder [Unknown]
  - Feeling of body temperature change [Unknown]
  - Affect lability [Unknown]
  - Feeling of body temperature change [Recovering/Resolving]
